FAERS Safety Report 12864258 (Version 1)
Quarter: 2016Q4

REPORT INFORMATION
  Report Type: Spontaneous
  Country: US (occurrence: US)
  Receive Date: 20161020
  Receipt Date: 20161020
  Transmission Date: 20170207
  Serious: Yes (Other)
  Sender: FDA-Public Use
  Company Number: US-TEVA-644474USA

PATIENT
  Age: 63 Year
  Sex: Female
  Weight: 83.08 kg

DRUGS (12)
  1. ASPIRIN. [Concomitant]
     Active Substance: ASPIRIN
     Dates: start: 20070417
  2. METOPROLOL. [Concomitant]
     Active Substance: METOPROLOL
     Dates: start: 20121010
  3. PANTOPRAZOLE [Concomitant]
     Active Substance: PANTOPRAZOLE SODIUM
     Dates: start: 20110822
  4. METHOTREXATE. [Suspect]
     Active Substance: METHOTREXATE
     Dosage: WEEKLY ON FRIDAY
     Route: 048
     Dates: start: 20160101, end: 20160120
  5. METFORMIN [Concomitant]
     Active Substance: METFORMIN HYDROCHLORIDE
     Dates: start: 20140313
  6. METHOTREXATE. [Suspect]
     Active Substance: METHOTREXATE
     Indication: FIBROMYALGIA
     Dosage: 5 MILLIGRAM DAILY;
     Route: 048
     Dates: start: 20160121, end: 20160209
  7. PLAQUENIL [Concomitant]
     Active Substance: HYDROXYCHLOROQUINE SULFATE
     Dates: start: 20150604
  8. PLAVIX [Concomitant]
     Active Substance: CLOPIDOGREL BISULFATE
     Dates: start: 20070417
  9. ZANTAC [Concomitant]
     Active Substance: RANITIDINE HYDROCHLORIDE
     Dates: start: 20051019
  10. SUCRALFATE. [Concomitant]
     Active Substance: SUCRALFATE
     Dates: start: 20130920
  11. HYDROCHLOROTHIAZIDE. [Concomitant]
     Active Substance: HYDROCHLOROTHIAZIDE
     Dates: start: 20130103
  12. FOLIC ACID. [Concomitant]
     Active Substance: FOLIC ACID
     Dates: start: 20130208

REACTIONS (1)
  - Immunosuppression [Recovered/Resolved]

NARRATIVE: CASE EVENT DATE: 20160128
